FAERS Safety Report 5338660-3 (Version None)
Quarter: 2007Q2

REPORT INFORMATION
  Report Type: 
  Country: None (occurrence: None)
  Receive Date: 20070328
  Receipt Date: 20070126
  Transmission Date: 20071010
  Serious: Yes (Hospitalization)
  Sender: FDA-Public Use
  Company Number: PHEH2007US01326

PATIENT
  Age: 58 Year
  Sex: Male

DRUGS (1)
  1. MYFORTIC [Suspect]
     Indication: RENAL TRANSPLANT
     Dosage: BID, ORAL
     Route: 048
     Dates: start: 20060621

REACTIONS (1)
  - DIARRHOEA [None]
